FAERS Safety Report 13191894 (Version 1)
Quarter: 2017Q1

REPORT INFORMATION
  Report Type: Spontaneous
  Country: US (occurrence: US)
  Receive Date: 20170206
  Receipt Date: 20170206
  Transmission Date: 20170428
  Serious: No
  Sender: FDA-Public Use
  Company Number: None

PATIENT
  Age: 41 Year
  Sex: Female
  Weight: 58.5 kg

DRUGS (9)
  1. HIBICLENS [Suspect]
     Active Substance: CHLORHEXIDINE GLUCONATE
     Indication: PREOPERATIVE CARE
     Dosage: ?          QUANTITY:2 SHOWERS;OTHER FREQUENCY:PRE-OP SHOWERS (2);?
     Route: 061
     Dates: start: 20101202, end: 20101202
  2. RELAFEN [Concomitant]
     Active Substance: NABUMETONE
  3. VESICARE [Concomitant]
     Active Substance: SOLIFENACIN SUCCINATE
  4. LILETTA [Concomitant]
     Active Substance: LEVONORGESTREL
  5. MIRENA [Concomitant]
     Active Substance: LEVONORGESTREL
  6. EVENING PRIMROSE CAPSULES [Concomitant]
  7. FLEXERIL [Concomitant]
     Active Substance: CYCLOBENZAPRINE HYDROCHLORIDE
  8. SPIRINOLACTONE [Concomitant]
  9. TOVIAZ [Concomitant]
     Active Substance: FESOTERODINE FUMARATE

REACTIONS (2)
  - Urticaria [None]
  - Pruritus [None]

NARRATIVE: CASE EVENT DATE: 20101203
